FAERS Safety Report 13738609 (Version 1)
Quarter: 2017Q3

REPORT INFORMATION
  Report Type: Report from Study
  Country: US (occurrence: US)
  Receive Date: 20170710
  Receipt Date: 20170710
  Transmission Date: 20171127
  Serious: Yes (Other)
  Sender: FDA-Public Use
  Company Number: US-SAOL THERAPEUTICS-2017SAO00239

PATIENT
  Sex: Male

DRUGS (8)
  1. FENTANYL. [Suspect]
     Active Substance: FENTANYL
     Dosage: 2100.2 ?G, \DAY
     Route: 037
     Dates: start: 20140910
  2. COMPOUNDED BACLOFEN [Suspect]
     Active Substance: BACLOFEN
     Dosage: 234.06 ?G, \DAY
     Route: 037
     Dates: start: 20140910
  3. CLONIDINE. [Suspect]
     Active Substance: CLONIDINE
     Dosage: 250.78 ?G, \DAY
     Route: 037
     Dates: start: 20140910
  4. COMPOUNDED BACLOFEN [Suspect]
     Active Substance: BACLOFEN
     Dosage: 183.77 ?G, \DAY
     Route: 037
     Dates: start: 20140910
  5. FENTANYL. [Suspect]
     Active Substance: FENTANYL
     Dosage: 2675 ?G, \DAY
     Route: 037
     Dates: start: 20140910
  6. BUPIVACAINE. [Suspect]
     Active Substance: BUPIVACAINE
     Dosage: 2.625 MG, \DAY
     Route: 037
     Dates: start: 20140910
  7. CLONIDINE. [Suspect]
     Active Substance: CLONIDINE
     Dosage: 196.9 ?G, \DAY
     Route: 037
     Dates: start: 20140910
  8. BUPIVACAINE. [Suspect]
     Active Substance: BUPIVACAINE
     Dosage: 3.344 MG, \DAY
     Route: 037
     Dates: start: 20140910

REACTIONS (2)
  - Device failure [Recovered/Resolved with Sequelae]
  - Withdrawal syndrome [Recovered/Resolved]

NARRATIVE: CASE EVENT DATE: 20150228
